FAERS Safety Report 10360632 (Version 1)
Quarter: 2014Q3

REPORT INFORMATION
  Report Type: Spontaneous
  Country: DK (occurrence: FR)
  Receive Date: 20140804
  Receipt Date: 20140804
  Transmission Date: 20150326
  Serious: Yes (Hospitalization)
  Sender: FDA-Public Use
  Company Number: FR-FRI-1000069525

PATIENT
  Age: 51 Year
  Sex: Male

DRUGS (6)
  1. LEXOMIL [Suspect]
     Active Substance: BROMAZEPAM
     Dosage: 6 MG
     Route: 048
  2. ESCITALOPRAM [Suspect]
     Active Substance: ESCITALOPRAM OXALATE
     Dosage: 10 MG
     Route: 048
  3. BACLOFENE [Suspect]
     Active Substance: BACLOFEN
     Dosage: OVERDOSE OF 90 TO 120 MG ONCE
     Route: 048
  4. LEXOMIL [Suspect]
     Active Substance: BROMAZEPAM
     Dosage: 15 MG
     Route: 048
  5. XANAX [Concomitant]
     Active Substance: ALPRAZOLAM
     Dosage: ON REQUEST
  6. MIANSERIN [Suspect]
     Active Substance: MIANSERIN

REACTIONS (4)
  - Coma [Recovered/Resolved]
  - Overdose [Recovered/Resolved]
  - Confusional state [Recovered/Resolved]
  - Conduction disorder [Unknown]

NARRATIVE: CASE EVENT DATE: 20140629
